FAERS Safety Report 9861680 (Version 1)
Quarter: 2014Q1

REPORT INFORMATION
  Report Type: Spontaneous
  Country: US (occurrence: None)
  Receive Date: 20140131
  Receipt Date: 20140131
  Transmission Date: 20141002
  Serious: Yes (Other)
  Sender: FDA-Public Use
  Company Number: None

PATIENT
  Age: 26 Year
  Sex: Male
  Weight: 42.64 kg

DRUGS (3)
  1. FAMOTIDINE [Suspect]
     Indication: GASTROOESOPHAGEAL REFLUX DISEASE
     Dosage: 7.5 CC 1 @BEDTIME  G TUBE
     Dates: start: 20131101
  2. OXCARBAZEPINE [Concomitant]
  3. DEPAKENE [Concomitant]

REACTIONS (5)
  - Gastrooesophageal reflux disease [None]
  - Retching [None]
  - Product substitution issue [None]
  - Convulsion [None]
  - Drug ineffective [None]
